FAERS Safety Report 12323971 (Version 2)
Quarter: 2017Q2

REPORT INFORMATION
  Report Type: Spontaneous
  Country: BE (occurrence: BE)
  Receive Date: 20160502
  Receipt Date: 20170504
  Transmission Date: 20170830
  Serious: Yes (Hospitalization, Other)
  Sender: FDA-Public Use
  Company Number: BE-TAKEDA-2016TUS007008

PATIENT
  Age: 46 Year
  Sex: Male
  Weight: 75 kg

DRUGS (3)
  1. ENTYVIO [Suspect]
     Active Substance: VEDOLIZUMAB
     Dosage: 300 MG, Q8WEEKS
     Route: 042
     Dates: start: 20170419
  2. ENTYVIO [Suspect]
     Active Substance: VEDOLIZUMAB
     Indication: CROHN^S DISEASE
     Dosage: 300 MG, Q4WEEKS
     Route: 042
     Dates: start: 20100705
  3. MEDROL [Suspect]
     Active Substance: METHYLPREDNISOLONE
     Indication: SPONDYLOARTHROPATHY
     Dosage: 32 MG, UNK
     Route: 065
     Dates: start: 201107

REACTIONS (1)
  - Osteonecrosis [Recovering/Resolving]

NARRATIVE: CASE EVENT DATE: 20160304
